FAERS Safety Report 8384800-1 (Version None)
Quarter: 2012Q2

REPORT INFORMATION
  Report Type: 
  Country: None (occurrence: None)
  Receive Date: 20120524
  Receipt Date: 20120516
  Transmission Date: 20120825
  Serious: Yes (Other)
  Sender: FDA-Public Use
  Company Number: CA-ROCHE-GNE306348

PATIENT
  Sex: Male

DRUGS (2)
  1. XOLAIR [Suspect]
  2. XOLAIR [Suspect]
     Indication: ASTHMA
     Dosage: 225 MG, Q2W
     Route: 058
     Dates: start: 20100212

REACTIONS (6)
  - PYREXIA [None]
  - SKIN DISORDER [None]
  - SOMNOLENCE [None]
  - ASTHMA [None]
  - TONSILLITIS [None]
  - FATIGUE [None]
